FAERS Safety Report 20837280 (Version 1)
Quarter: 2022Q2

REPORT INFORMATION
  Report Type: Spontaneous
  Country: US (occurrence: US)
  Receive Date: 20220517
  Receipt Date: 20220517
  Transmission Date: 20220721
  Serious: No
  Sender: FDA-Public Use
  Company Number: US-ALLERGAN-2134272US

PATIENT
  Sex: Female

DRUGS (1)
  1. ASACOL HD [Suspect]
     Active Substance: MESALAMINE
     Indication: Colitis ulcerative
     Dosage: 3 DF, BID
     Route: 048
     Dates: start: 2009

REACTIONS (6)
  - Gastrointestinal disorder [Recovered/Resolved]
  - Illness [Recovered/Resolved]
  - Poor quality product administered [Unknown]
  - Product physical issue [Unknown]
  - Product quality issue [Unknown]
  - Product availability issue [Unknown]

NARRATIVE: CASE EVENT DATE: 20210101
